FAERS Safety Report 18904420 (Version 1)
Quarter: 2021Q1

REPORT INFORMATION
  Report Type: Spontaneous
  Country: US (occurrence: US)
  Receive Date: 20210217
  Receipt Date: 20210217
  Transmission Date: 20210420
  Serious: No
  Sender: FDA-Public Use
  Company Number: US-ASTRAZENECA-2021A029277

PATIENT
  Sex: Male
  Weight: 77.1 kg

DRUGS (2)
  1. BREZTRI [Suspect]
     Active Substance: BUDESONIDE\FORMOTEROL\GLYCOPYRRONIUM
     Indication: EMPHYSEMA
     Dosage: 2 PUFFS, TWO TIMES A DAY
     Route: 055
     Dates: start: 202101
  2. BREZTRI [Suspect]
     Active Substance: BUDESONIDE\FORMOTEROL\GLYCOPYRRONIUM
     Indication: CHRONIC OBSTRUCTIVE PULMONARY DISEASE
     Dosage: 2 PUFFS, TWO TIMES A DAY
     Route: 055
     Dates: start: 202101

REACTIONS (1)
  - Lip disorder [Unknown]
